FAERS Safety Report 17530427 (Version 3)
Quarter: 2020Q2

REPORT INFORMATION
  Report Type: Report from Study
  Country: EG (occurrence: EG)
  Receive Date: 20200312
  Receipt Date: 20200408
  Transmission Date: 20200713
  Serious: Yes (Other)
  Sender: FDA-Public Use
  Company Number: NVSC2020EG067058

PATIENT
  Age: 52 Year
  Sex: Female

DRUGS (5)
  1. GLIVEC [Suspect]
     Active Substance: IMATINIB MESYLATE
     Indication: CHRONIC MYELOID LEUKAEMIA
     Dosage: 1 DF, QD {ABOUT ONE YEAR AND 8 MONTHS AGO}
     Route: 065
  2. AMARYL [Concomitant]
     Active Substance: GLIMEPIRIDE
     Indication: PRODUCT USED FOR UNKNOWN INDICATION
     Dosage: UNK UNK, QD {8 YEARS AGO TO ONGOING}
     Route: 065
  3. CONCOR [Concomitant]
     Active Substance: BISOPROLOL FUMARATE
     Indication: PRODUCT USED FOR UNKNOWN INDICATION
     Dosage: UNK UNK, QD {8 YEARS AGO TO ONGOING}
     Route: 065
  4. PARAMOL [Concomitant]
     Indication: PRODUCT USED FOR UNKNOWN INDICATION
     Dosage: UNK, BID {AFTER 2 MONTHS OF STARTING GLIVEC TO ONGOING}
     Route: 065
  5. DELTAVIT B12 [Concomitant]
     Indication: PRODUCT USED FOR UNKNOWN INDICATION
     Dosage: 1 DF {5 MONTHS AGO TO ONGOING}
     Route: 060

REACTIONS (5)
  - Thrombocytopenia [Not Recovered/Not Resolved]
  - Retinal disorder [Not Recovered/Not Resolved]
  - Coagulopathy [Unknown]
  - Eye haemorrhage [Not Recovered/Not Resolved]
  - Blindness [Not Recovered/Not Resolved]

NARRATIVE: CASE EVENT DATE: 201911
